FAERS Safety Report 11472917 (Version 1)
Quarter: 2015Q3

REPORT INFORMATION
  Report Type: Spontaneous
  Country: FI (occurrence: FI)
  Receive Date: 20150908
  Receipt Date: 20150908
  Transmission Date: 20151125
  Serious: Yes (Other)
  Sender: FDA-Public Use
  Company Number: FI-JAZZ-2014-FI-009806

PATIENT
  Age: 19 Year
  Sex: Female
  Weight: 72 kg

DRUGS (5)
  1. XYREM [Suspect]
     Active Substance: SODIUM OXYBATE
     Indication: SOMNOLENCE
  2. XYREM [Suspect]
     Active Substance: SODIUM OXYBATE
     Indication: SLEEP PARALYSIS
  3. XYREM [Suspect]
     Active Substance: SODIUM OXYBATE
     Indication: NARCOLEPSY
     Dosage: 4.5 GRAMS PER NIGHT
     Route: 048
  4. XYREM [Suspect]
     Active Substance: SODIUM OXYBATE
     Indication: CATAPLEXY
     Dosage: UNKNOWN SINGLE DOSE
     Route: 048
  5. MODAFINIL. [Concomitant]
     Active Substance: MODAFINIL
     Indication: NARCOLEPSY
     Dosage: 100 MG, BID

REACTIONS (6)
  - Nightmare [Recovering/Resolving]
  - Hallucination, visual [Recovering/Resolving]
  - Abnormal dreams [Recovering/Resolving]
  - Paraesthesia [Unknown]
  - Condition aggravated [Recovering/Resolving]
  - Hallucination, auditory [Recovering/Resolving]
